FAERS Safety Report 14182135 (Version 1)
Quarter: 2017Q4

REPORT INFORMATION
  Report Type: Report from Study
  Country: None (occurrence: US)
  Receive Date: 20171113
  Receipt Date: 20171113
  Transmission Date: 20180321
  Serious: Yes (Other)
  Sender: FDA-Public Use
  Company Number: US-ABBVIE-17K-163-1913870-00

PATIENT
  Sex: Female

DRUGS (1)
  1. HUMIRA [Suspect]
     Active Substance: ADALIMUMAB
     Indication: CROHN^S DISEASE
     Route: 058

REACTIONS (9)
  - Stomatitis [Not Recovered/Not Resolved]
  - Bladder prolapse [Unknown]
  - Tooth loss [Unknown]
  - Toothache [Not Recovered/Not Resolved]
  - Malaise [Unknown]
  - Crohn^s disease [Not Recovered/Not Resolved]
  - Diarrhoea [Recovering/Resolving]
  - Bowel movement irregularity [Unknown]
  - Fatigue [Recovering/Resolving]
